FAERS Safety Report 7337375-X (Version None)
Quarter: 2011Q1

REPORT INFORMATION
  Report Type: 
  Country: None (occurrence: None)
  Receive Date: 20110224
  Receipt Date: 20110217
  Transmission Date: 20110831
  Serious: Yes (Other)
  Sender: FDA-Public Use
  Company Number: TRP_07579_2011

PATIENT
  Sex: Female

DRUGS (2)
  1. PEGASYS [Suspect]
     Indication: PRODUCT USED FOR UNKNOWN INDICATION
     Dosage: (DF)
  2. RIBASPHERE [Suspect]
     Indication: PRODUCT USED FOR UNKNOWN INDICATION
     Dosage: (DF)

REACTIONS (9)
  - COLITIS [None]
  - ARTHRALGIA [None]
  - RASH [None]
  - GINGIVAL DISORDER [None]
  - JOINT SWELLING [None]
  - PERIODONTAL DISEASE [None]
  - BLOOD POTASSIUM DECREASED [None]
  - PYREXIA [None]
  - WEIGHT INCREASED [None]
